FAERS Safety Report 4278474-9 (Version None)
Quarter: 2004Q1

REPORT INFORMATION
  Report Type: 
  Country: None (occurrence: None)
  Receive Date: 20040123
  Receipt Date: 20030130
  Transmission Date: 20041129
  Serious: Yes (Death, Hospitalization)
  Sender: FDA-Public Use
  Company Number: WAES 0302USA00117

PATIENT
  Age: 47 Year
  Sex: Male
  Weight: 117 kg

DRUGS (9)
  1. DARVOCET-N 100 [Concomitant]
     Dates: start: 20000914
  2. ASPIRIN [Concomitant]
     Dates: start: 20000914
  3. CELEBREX [Concomitant]
     Indication: ARTHRALGIA
     Dates: end: 20000914
  4. DIOVAN HCT [Concomitant]
  5. GLUCOPHAGE [Concomitant]
     Dates: start: 19991020, end: 20000627
  6. GLUCOPHAGE [Concomitant]
     Dates: start: 20000628, end: 20000914
  7. GLUCOPHAGE [Concomitant]
     Dates: start: 20000915
  8. FELDENE [Concomitant]
     Indication: ARTHRALGIA
     Dates: end: 20000101
  9. VIOXX [Suspect]
     Indication: LOCALISED OSTEOARTHRITIS
     Route: 048
     Dates: start: 20000829, end: 20010201

REACTIONS (20)
  - ABASIA [None]
  - ACUTE RESPIRATORY FAILURE [None]
  - ARTERIAL THROMBOSIS [None]
  - ATAXIA [None]
  - BASILAR ARTERY OCCLUSION [None]
  - BASILAR ARTERY STENOSIS [None]
  - BLOOD CHLORIDE DECREASED [None]
  - BLOOD GLUCOSE INCREASED [None]
  - BLOOD TRIGLYCERIDES INCREASED [None]
  - BRAIN STEM INFARCTION [None]
  - CEREBRAL INFARCTION [None]
  - COMA [None]
  - ELECTROCARDIOGRAM ST SEGMENT DEPRESSION [None]
  - ELECTROENCEPHALOGRAM ABNORMAL [None]
  - HYDROCEPHALUS [None]
  - INJURY [None]
  - LOW DENSITY LIPOPROTEIN INCREASED [None]
  - NECROSIS [None]
  - QRS AXIS ABNORMAL [None]
  - WHITE BLOOD CELL COUNT INCREASED [None]
